FAERS Safety Report 4885778-5 (Version None)
Quarter: 2006Q1

REPORT INFORMATION
  Report Type: 
  Country: None (occurrence: None)
  Receive Date: 20060117
  Receipt Date: 20060109
  Transmission Date: 20060701
  Serious: Yes (Life-Threatening)
  Sender: FDA-Public Use
  Company Number: 056-20785-06010236

PATIENT
  Age: 62 Year
  Sex: Male

DRUGS (2)
  1. THALIDOMIDE (THALIDOMIDE) [Suspect]
     Indication: MULTIPLE MYELOMA
  2. ZOLEDRONIC ACID (ZOLEDRONIC ACID) (INJECTION FOR INFUSION) [Suspect]
     Indication: MULTIPLE MYELOMA
     Dosage: 4 MG, INTRAVENOUS
     Route: 042

REACTIONS (2)
  - CONDITION AGGRAVATED [None]
  - RENAL FAILURE CHRONIC [None]
